FAERS Safety Report 4528935-X (Version None)
Quarter: 2004Q4

REPORT INFORMATION
  Report Type: 
  Country: None (occurrence: None)
  Receive Date: 20041214
  Receipt Date: 20041129
  Transmission Date: 20050328
  Serious: Yes (Death)
  Sender: FDA-Public Use
  Company Number: S04-UKI-07898-01

PATIENT
  Age: 52 Year
  Sex: Female

DRUGS (3)
  1. CIPRALEX (ESCITALOPRAM) [Suspect]
     Dosage: 10 MG QD PO
     Route: 048
     Dates: start: 20041115, end: 20041119
  2. METFORMIN HCL [Concomitant]
  3. PIOGLITAZONE HCL [Concomitant]

REACTIONS (1)
  - SUDDEN DEATH [None]
